FAERS Safety Report 12130548 (Version 4)
Quarter: 2016Q2

REPORT INFORMATION
  Report Type: Spontaneous
  Country: US (occurrence: US)
  Receive Date: 20160301
  Receipt Date: 20160609
  Transmission Date: 20160815
  Serious: Yes (Hospitalization, Other)
  Sender: FDA-Public Use
  Company Number: US-JNJFOC-20160116124

PATIENT
  Age: 52 Year
  Sex: Male

DRUGS (3)
  1. NORCO [Suspect]
     Active Substance: ACETAMINOPHEN\HYDROCODONE BITARTRATE
     Indication: PAIN
     Dosage: 7.5 MG-325 MG
     Route: 048
  2. HYDROCODONE [Concomitant]
     Active Substance: HYDROCODONE
     Indication: PRODUCT USED FOR UNKNOWN INDICATION
     Route: 065
  3. XARELTO [Suspect]
     Active Substance: RIVAROXABAN
     Indication: DEEP VEIN THROMBOSIS
     Dosage: VARYING DOSES OF 15 AND 20 MG
     Route: 048
     Dates: start: 20150108, end: 20150407

REACTIONS (3)
  - Lower gastrointestinal haemorrhage [Recovering/Resolving]
  - Haemorrhoidal haemorrhage [Recovering/Resolving]
  - Haemorrhoids [Unknown]

NARRATIVE: CASE EVENT DATE: 201502
